FAERS Safety Report 24853511 (Version 1)
Quarter: 2025Q1

REPORT INFORMATION
  Report Type: Report from Study
  Country: US (occurrence: US)
  Receive Date: 20250117
  Receipt Date: 20250117
  Transmission Date: 20250409
  Serious: Yes (Other)
  Sender: JAZZ
  Company Number: US-JAZZ PHARMACEUTICALS-2024-US-019141

PATIENT
  Sex: Male

DRUGS (3)
  1. EPIDIOLEX [Suspect]
     Active Substance: CANNABIDIOL
     Indication: Product used for unknown indication
     Dosage: UNK UNK, QD
     Route: 048
  2. EPIDIOLEX [Suspect]
     Active Substance: CANNABIDIOL
     Dosage: 3 MILLILITER, BID GT
     Dates: start: 20240913
  3. EPIDIOLEX [Suspect]
     Active Substance: CANNABIDIOL
     Dosage: 3 MILLILITER, BID
     Route: 048
     Dates: start: 20240923

REACTIONS (6)
  - Photosensitive seizure [Unknown]
  - Seizure [Recovering/Resolving]
  - Secretion discharge [Recovering/Resolving]
  - Weight increased [Recovering/Resolving]
  - Logorrhoea [Recovering/Resolving]
  - Therapeutic response unexpected [Unknown]
